FAERS Safety Report 5856584-X (Version None)
Quarter: 2008Q3

REPORT INFORMATION
  Report Type: 
  Country: None (occurrence: None)
  Receive Date: 20080825
  Receipt Date: 20080820
  Transmission Date: 20090109
  Serious: Yes (Hospitalization, Other)
  Sender: FDA-Public Use
  Company Number: GB-MERCK-0807GBR00134

PATIENT
  Age: 73 Year
  Sex: Male

DRUGS (4)
  1. ZOCOR [Suspect]
     Route: 048
     Dates: end: 20080101
  2. FUSIDATE SODIUM [Suspect]
     Indication: SINUS DISORDER
     Route: 065
  3. OMEPRAZOLE [Concomitant]
     Route: 065
  4. ASPIRIN [Concomitant]
     Route: 065
     Dates: end: 20080101

REACTIONS (3)
  - DRUG INTERACTION [None]
  - MYOGLOBINURIA [None]
  - RHABDOMYOLYSIS [None]
